FAERS Safety Report 11360857 (Version 3)
Quarter: 2015Q3

REPORT INFORMATION
  Report Type: Spontaneous
  Country: US (occurrence: US)
  Receive Date: 20150810
  Receipt Date: 20150923
  Transmission Date: 20151125
  Serious: Yes (Death, Hospitalization, Other)
  Sender: FDA-Public Use
  Company Number: US-PFIZER INC-2015251387

PATIENT
  Age: 69 Year
  Sex: Male

DRUGS (9)
  1. FENTANYL. [Concomitant]
     Active Substance: FENTANYL
     Dosage: 50 MCG/HR EVERY 72 HOURS
     Route: 062
     Dates: start: 20150618
  2. MAGNESIUM [Concomitant]
     Active Substance: MAGNESIUM
     Indication: SUPPLEMENTATION THERAPY
     Dosage: UNK
  3. HYDROCODONE/ACETAMINOPHEN [Concomitant]
     Active Substance: ACETAMINOPHEN\HYDROCODONE
     Indication: PAIN
     Dosage: AS NEEDED, 5-325MG, 1-2 TABLET EVERY 6 HOURS
     Route: 048
     Dates: start: 20150321
  4. OMEPRAZOLE. [Concomitant]
     Active Substance: OMEPRAZOLE
     Dosage: 40 MG, DAILY
     Route: 048
     Dates: start: 20150318
  5. BRIMONIDINE TARTRATE. [Concomitant]
     Active Substance: BRIMONIDINE TARTRATE
     Dosage: 1 GTT, DAILY, (ONE DROP IN EACH EYE)
     Route: 047
     Dates: start: 20150318
  6. CALCIUM [Concomitant]
     Active Substance: CALCIUM
     Indication: SUPPLEMENTATION THERAPY
     Dosage: UNK
  7. TORISEL [Suspect]
     Active Substance: TEMSIROLIMUS
     Indication: RENAL CELL CARCINOMA
     Dosage: 25 MG, WEEKLY
     Route: 042
     Dates: start: 20150420, end: 20150608
  8. DORZOLAMIDE TIMOLOL [Concomitant]
     Active Substance: DORZOLAMIDE
     Dosage: 1 GTT, DAILY, (ONE DROP IN EACH EYE)
     Route: 047
     Dates: start: 20150318
  9. POTASSIUM [Concomitant]
     Active Substance: POTASSIUM
     Indication: SUPPLEMENTATION THERAPY
     Dosage: UNK

REACTIONS (17)
  - Disease progression [Unknown]
  - Hypocalcaemia [Recovering/Resolving]
  - Weight decreased [Unknown]
  - Vomiting [Recovering/Resolving]
  - Cough [Unknown]
  - Hyperbilirubinaemia [Unknown]
  - Renal cell carcinoma [Unknown]
  - Dyspnoea [Unknown]
  - Hyponatraemia [Unknown]
  - Transfusion reaction [Recovered/Resolved with Sequelae]
  - Hypomagnesaemia [Unknown]
  - Asthenia [Unknown]
  - Decreased appetite [Unknown]
  - Blood alkaline phosphatase increased [Unknown]
  - Acute kidney injury [Unknown]
  - Pneumonia [Fatal]
  - Peripheral swelling [Unknown]

NARRATIVE: CASE EVENT DATE: 2015
